FAERS Safety Report 6208340-0 (Version None)
Quarter: 2009Q2

REPORT INFORMATION
  Report Type: 
  Country: None (occurrence: None)
  Receive Date: 20090529
  Receipt Date: 20090519
  Transmission Date: 20091009
  Serious: Yes (Hospitalization)
  Sender: FDA-Public Use
  Company Number: ES-BAXTER-2009BH007812

PATIENT
  Age: 44 Year
  Sex: Female
  Weight: 61 kg

DRUGS (11)
  1. CYCLOPHOSPHAMIDE [Suspect]
     Indication: BREAST CANCER
     Route: 042
     Dates: start: 20090130, end: 20090401
  2. ADRIAMYCIN RDF [Suspect]
     Indication: BREAST CANCER
     Route: 042
     Dates: start: 20090130, end: 20090401
  3. DEXAMETHASONE 4MG TAB [Concomitant]
     Indication: DRUG USE FOR UNKNOWN INDICATION
     Route: 065
     Dates: start: 20090130, end: 20090130
  4. TROPISETRON [Concomitant]
     Indication: DRUG USE FOR UNKNOWN INDICATION
     Route: 065
     Dates: start: 20090130, end: 20090130
  5. DEXAMETHASONE 4MG TAB [Concomitant]
     Route: 065
     Dates: start: 20090220, end: 20090220
  6. TROPISETRON [Concomitant]
     Route: 065
     Dates: start: 20090220, end: 20090220
  7. DEXAMETHASONE 4MG TAB [Concomitant]
     Route: 065
     Dates: start: 20090313, end: 20090313
  8. TROPISETRON [Concomitant]
     Route: 065
     Dates: start: 20090313, end: 20090313
  9. MAGNESIUM SULFATE [Concomitant]
     Indication: DRUG USE FOR UNKNOWN INDICATION
     Route: 065
  10. MICROLAX [Concomitant]
     Indication: DRUG USE FOR UNKNOWN INDICATION
     Route: 065
     Dates: start: 20090312
  11. OMEPRAZOLE [Concomitant]
     Indication: PROPHYLAXIS
     Route: 065
     Dates: start: 20090312

REACTIONS (2)
  - DYSPNOEA [None]
  - PYREXIA [None]
